FAERS Safety Report 6213506-X (Version None)
Quarter: 2009Q2

REPORT INFORMATION
  Report Type: 
  Country: None (occurrence: None)
  Receive Date: 20090603
  Receipt Date: 20090522
  Transmission Date: 20091009
  Serious: Yes (Other)
  Sender: FDA-Public Use
  Company Number: DE-PFIZER INC-2009216909

PATIENT

DRUGS (2)
  1. CLINDAMYCIN HCL [Suspect]
     Indication: FURUNCLE
     Dosage: 300 MG, 4X/DAY
     Route: 048
     Dates: start: 20090520
  2. L-THYROXIN [Concomitant]

REACTIONS (1)
  - INFLUENZA LIKE ILLNESS [None]
